FAERS Safety Report 7676188-6 (Version None)
Quarter: 2011Q3

REPORT INFORMATION
  Report Type: 
  Country: None (occurrence: None)
  Receive Date: 20110811
  Receipt Date: 20110809
  Transmission Date: 20111222
  Serious: Yes (Hospitalization)
  Sender: FDA-Public Use
  Company Number: FR-JNJFOC-20110710975

PATIENT
  Sex: Female

DRUGS (5)
  1. RISPERDAL [Suspect]
     Indication: AGITATION
     Route: 048
     Dates: start: 20110623, end: 20110623
  2. NEBIVOLOL HCL [Concomitant]
     Indication: HYPERTENSION
     Route: 048
  3. LASIX [Concomitant]
     Indication: CARDIAC FAILURE
     Route: 048
  4. ACETAMINOPHEN [Concomitant]
     Indication: PAIN
     Route: 048
     Dates: start: 20110621, end: 20110623
  5. MOTILIUM [Suspect]
     Indication: NAUSEA
     Route: 048
     Dates: start: 20110622, end: 20110622

REACTIONS (3)
  - SOMNOLENCE [None]
  - FAECALOMA [None]
  - URINARY RETENTION [None]
